FAERS Safety Report 5839991-0 (Version None)
Quarter: 2008Q3

REPORT INFORMATION
  Report Type: 
  Country: None (occurrence: None)
  Receive Date: 20080807
  Receipt Date: 20080807
  Transmission Date: 20090109
  Serious: Yes (Other)
  Sender: FDA-Public Use
  Company Number: None

PATIENT
  Sex: Male

DRUGS (3)
  1. AMBIEN [Suspect]
     Indication: INSOMNIA
     Dosage: 10 MG HS PRN ORAL
     Route: 048
     Dates: start: 20071213, end: 20080101
  2. CYMBALTA [Concomitant]
  3. ZYPREXA [Concomitant]

REACTIONS (4)
  - ABNORMAL SLEEP-RELATED EVENT [None]
  - ROAD TRAFFIC ACCIDENT [None]
  - SLEEP-RELATED EATING DISORDER [None]
  - SOMNAMBULISM [None]
